FAERS Safety Report 24717185 (Version 1)
Quarter: 2024Q4

REPORT INFORMATION
  Report Type: Spontaneous
  Country: GB (occurrence: GB)
  Receive Date: 20241210
  Receipt Date: 20241210
  Transmission Date: 20250114
  Serious: Yes (Life-Threatening, Hospitalization, Disabling, Other)
  Sender: ABBVIE
  Company Number: None

PATIENT
  Age: 56 Year
  Sex: Female
  Weight: 76 kg

DRUGS (2)
  1. ADALIMUMAB [Suspect]
     Active Substance: ADALIMUMAB
     Indication: Rheumatoid arthritis
     Route: 058
     Dates: start: 2024, end: 2024
  2. METHOTREXATE [Suspect]
     Active Substance: METHOTREXATE
     Indication: Rheumatoid arthritis
     Route: 065
     Dates: start: 20160426

REACTIONS (17)
  - Myocarditis [Not Recovered/Not Resolved]
  - Ejection fraction decreased [Unknown]
  - Haemorrhage [Unknown]
  - Mitral valve incompetence [Unknown]
  - Cardiac arrest [Recovered/Resolved]
  - Blood lactic acid increased [Unknown]
  - Skin haemorrhage [Unknown]
  - Thrombosis [Unknown]
  - Electrocardiogram ST segment elevation [Unknown]
  - Dyspnoea [Unknown]
  - Exercise tolerance decreased [Unknown]
  - Orthopnoea [Unknown]
  - Dyspnoea paroxysmal nocturnal [Unknown]
  - Pleural effusion [Unknown]
  - Brain natriuretic peptide increased [Unknown]
  - Right ventricular dysfunction [Recovering/Resolving]
  - Cardiac arrest [Unknown]

NARRATIVE: CASE EVENT DATE: 20240101
